FAERS Safety Report 21883082 (Version 3)
Quarter: 2023Q1

REPORT INFORMATION
  Report Type: Spontaneous
  Country: IT (occurrence: IT)
  Receive Date: 20230119
  Receipt Date: 20230207
  Transmission Date: 20230417
  Serious: Yes (Other)
  Sender: FDA-Public Use
  Company Number: IT-ROCHE-3247284

PATIENT
  Age: 47 Year
  Sex: Male

DRUGS (40)
  1. DOXORUBICIN [Suspect]
     Active Substance: DOXORUBICIN
     Indication: Mantle cell lymphoma
     Dosage: (AS A PART OF CHOP REGIMEN), FIRST LINE OF SYSTEMIC TREATMENT, R-CHOP/R-DHAOX (RITUXIMAB BIOSIMILLAR
     Route: 042
     Dates: start: 20210401, end: 20211001
  2. DOXORUBICIN [Suspect]
     Active Substance: DOXORUBICIN
     Dosage: START DATE- APR-2021, STOP DATE- OCT-2021, (CHOP), FIRST LINE OF SYSTEMIC TREATMENT, R-CHOP/R-DHAOX
     Route: 065
  3. CYCLOPHOSPHAMIDE [Suspect]
     Active Substance: CYCLOPHOSPHAMIDE
     Indication: Mantle cell lymphoma
     Dosage: (AS A PART OF CHOP REGIMEN), FIRST LINE OF SYSTEMIC TREATMENT, R-CHOP/R-DHAOX (RITUXIMAB BIOSIMILLAR
     Route: 042
     Dates: start: 20210401, end: 20211001
  4. CYCLOPHOSPHAMIDE [Suspect]
     Active Substance: CYCLOPHOSPHAMIDE
     Dosage: START DATE- APR-2021, STOP DATE- OCT-2021, (CHOP), FIRST LINE OF SYSTEMIC TREATMENT, R-CHOP/R-DHAOX
     Route: 065
  5. CISPLATIN [Suspect]
     Active Substance: CISPLATIN
     Indication: Mantle cell lymphoma
     Dosage: START DATE- APR-2021, STOP DATE- OCT-2021, FIRST LINE OF SYSTEMIC TREATMENT, R-CHOP/R-DHAOX (RITUXIM
     Route: 042
  6. CISPLATIN [Suspect]
     Active Substance: CISPLATIN
     Dosage: (START DATE: APR-2021, STOP DATE: OCT-2021), FIRST LINE OF SYSTEMIC TREATMENT, R-CHOP/R-DHAOX (RITUX
     Route: 042
  7. CYTARABINE [Suspect]
     Active Substance: CYTARABINE
     Indication: Mantle cell lymphoma
     Dosage: START DATE- APR-2021, STOP DATE- OCT-2021, FIRST LINE OF SYSTEMIC TREATMENT, R-CHOP/R-DHAOX (RITUXIM
     Route: 042
  8. CYTARABINE [Suspect]
     Active Substance: CYTARABINE
     Dosage: START DATE- APR-2021, STOP DATE- OCT-2021, FIRST LINE OF SYSTEMIC TREATMENT, R-CHOP/R-DHAOX (RITUXIM
     Route: 065
  9. CYTARABINE [Suspect]
     Active Substance: CYTARABINE
     Dosage: (START DATE: APR-2021, STOP DATE: OCT-2021), FIRST LINE OF SYSTEMIC TREATMENT, R-CHOP/R-DHAOX (RITUX
     Route: 042
  10. VENETOCLAX [Suspect]
     Active Substance: VENETOCLAX
     Indication: Mantle cell lymphoma
     Dosage: START DATE- MAR-2022, STOP DATE- APR-2022, THIRD LINE OF SYSTEMIC TREATMENT, IBRUTINIB + VENETOCLAX
     Route: 042
  11. VENETOCLAX [Suspect]
     Active Substance: VENETOCLAX
     Dosage: START DATE- MAR-2022, STOP DATE- APR-2022, THIRD LINE OF SYSTEMIC TREATMENT, IBRUTINIB + VENETOCLAX
     Route: 065
  12. RITUXIMAB [Suspect]
     Active Substance: RITUXIMAB
     Indication: Mantle cell lymphoma
     Dosage: START DATE- APR-2021, STOP DATE- OCT-2021,FIRST LINE OF SYSTEMIC TREATMENT, R-CHOP/R-DHAOX (RITUXIMA
     Route: 042
  13. RITUXIMAB [Suspect]
     Active Substance: RITUXIMAB
     Dosage: 375 MG/M2, SIXTH LINE OF SYSTEMIC TREATMENT, POLATUZUMAB VEDOTIN (P-BR) 375 MG/SQM ON DAY 1
     Route: 042
     Dates: start: 20221011, end: 20221103
  14. RITUXIMAB [Suspect]
     Active Substance: RITUXIMAB
     Dosage: FOURTH LINE OF SYSTEMIC TREATMENT, POLATUZUMAB VEDOTIN (P-BR) 375 MG/SQM ON DAY 1, (STOP DATE: MAY-2
     Route: 042
     Dates: start: 20220428
  15. RITUXIMAB [Suspect]
     Active Substance: RITUXIMAB
     Dosage: START DATE- OCT-2022, STOP DATE- NOV-2022, SIXTH LINE OF SYSTEMIC TREATMENT, POLATUZUMAB VEDOTIN (P-
     Route: 065
  16. RITUXIMAB [Suspect]
     Active Substance: RITUXIMAB
     Dosage: START DATE- MAY-2022, STOP DATE- MAY-2022, FOURTH LINE OF SYSTEMIC TREATMENT, POLATUZUMAB VEDOTIN (P
     Route: 065
  17. RITUXIMAB [Suspect]
     Active Substance: RITUXIMAB
     Dosage: START DATE- APR-2021, STOP DATE- OCT-2021, FIRST LINE OF SYSTEMIC TREATMENT, R-CHOP/R-DHAOX (RITUXIM
     Route: 042
  18. RITUXIMAB [Suspect]
     Active Substance: RITUXIMAB
     Dosage: (START DATE: APR-2021, STOP DATE: OCT-2021), FIRST LINE OF SYSTEMIC TREATMENT, R-CHOP/R-DHAOX (RITUX
     Route: 042
  19. RITUXIMAB [Suspect]
     Active Substance: RITUXIMAB
     Dosage: FOURTH LINE OF SYSTEMIC TREATMENT, POLATUZUMAB VEDOTIN (P-BR) 375 MG/SQM ON DAY 1 (UNTIL MAY-2022)
     Route: 042
     Dates: start: 20220428
  20. BENDAMUSTINE HYDROCHLORIDE [Suspect]
     Active Substance: BENDAMUSTINE HYDROCHLORIDE
     Indication: Mantle cell lymphoma
     Dosage: 70 MG/KG, START DATE- MAY-2022, STOP DATE- MAY-2022, 70 MG/M2, CYCLIC [FOURTH LINE OF SYSTEMIC TREAT
     Route: 042
  21. BENDAMUSTINE HYDROCHLORIDE [Suspect]
     Active Substance: BENDAMUSTINE HYDROCHLORIDE
     Dosage: 90 MG/M2, START DATE- OCT-2022, STOP DATE- NOV-2022,90 MG/M2, CYCLIC [SIXTH LINE OF SYSTEMIC TREATME
     Route: 042
  22. BENDAMUSTINE HYDROCHLORIDE [Suspect]
     Active Substance: BENDAMUSTINE HYDROCHLORIDE
     Dosage: START DATE- MAY-2022, STOP DATE- MAY-2022, FOURTH LINE OF SYSTEMIC TREATMENT, POLATUZUMAB VEDOTIN (P
     Route: 065
  23. BENDAMUSTINE HYDROCHLORIDE [Suspect]
     Active Substance: BENDAMUSTINE HYDROCHLORIDE
     Dosage: START DATE- OCT-2022, STOP DATE- NOV-2022, SIXTH LINE OF SYSTEMIC TREATMENT, POLATUZUMAB VEDOTIN (P-
     Route: 065
  24. BENDAMUSTINE HYDROCHLORIDE [Suspect]
     Active Substance: BENDAMUSTINE HYDROCHLORIDE
     Dosage: (START DATE: MAY-2022, STOP DATE: MAY-2022), FOURTH LINE OF SYSTEMIC TREATMENT, POLATUZUMAB VEDOTIN
     Route: 042
  25. BENDAMUSTINE HYDROCHLORIDE [Suspect]
     Active Substance: BENDAMUSTINE HYDROCHLORIDE
     Dosage: (START DATE: OCT-2022, STOP DATE: NOV-2022), SIXTH LINE OF SYSTEMIC TREATMENT, POLATUZUMAB VEDOTIN (
     Route: 042
  26. POLATUZUMAB VEDOTIN [Suspect]
     Active Substance: POLATUZUMAB VEDOTIN
     Indication: Mantle cell lymphoma
     Dosage: FOURTH LINE OF SYSTEMIC TREATMENT, POLATUZUMAB VEDOTIN (P-BR) 1.8 MG/KG ON DAY 2 (UNTIL MAY-2022)
     Route: 042
     Dates: start: 20220501
  27. POLATUZUMAB VEDOTIN [Suspect]
     Active Substance: POLATUZUMAB VEDOTIN
     Dosage: 1.8 MG/M2, SIXTH LINE OF SYSTEMIC TREATMENT, POLATUZUMAB VEDOTIN (P-BR) 1.8 MG/KG ON DAY 2
     Route: 042
     Dates: start: 20221001, end: 20221101
  28. POLATUZUMAB VEDOTIN [Suspect]
     Active Substance: POLATUZUMAB VEDOTIN
     Dosage: START DATE- MAY-2022, STOP DATE- MAY-2022, FOURTH LINE OF SYSTEMIC TREATMENT, POLATUZUMAB VEDOTIN (P
     Route: 065
  29. POLATUZUMAB VEDOTIN [Suspect]
     Active Substance: POLATUZUMAB VEDOTIN
     Dosage: START DATE- OCT-2022, STOP DATE- NOV-2022, SIXTH LINE OF SYSTEMIC TREATMENT, POLATUZUMAB VEDOTIN (P-
     Route: 065
  30. IBRUTINIB [Suspect]
     Active Substance: IBRUTINIB
     Indication: Mantle cell lymphoma
     Dosage: SECOND LINE OF SYSTEMIC TREATMENT, IBRUTINIB MONOTHERAPY
     Route: 042
     Dates: start: 20211101, end: 20220201
  31. IBRUTINIB [Suspect]
     Active Substance: IBRUTINIB
     Dosage: START DATE- MAR-2022, STOP DATE- APR-2022, THIRD LINE OF SYSTEMIC TREATMENT, IBRUTINIB + VENETOCLAX
     Route: 065
  32. IBRUTINIB [Suspect]
     Active Substance: IBRUTINIB
     Dosage: START DATE- NOV-2021, STOP DATE- FEB-2022, SECOND LINE OF SYSTEMIC TREATMENT, IBRUTINIB MONOTHERAPY,
     Route: 065
  33. VINCRISTINE SULFATE [Suspect]
     Active Substance: VINCRISTINE SULFATE
     Indication: Mantle cell lymphoma
     Dosage: (AS A PART OF CHOP REGIMEN), FIRST LINE OF SYSTEMIC TREATMENT, R-CHOP/R-DHAOX (RITUXIMAB BIOSIMILLAR
     Route: 042
     Dates: start: 20210401, end: 20211001
  34. VINCRISTINE SULFATE [Suspect]
     Active Substance: VINCRISTINE SULFATE
     Dosage: START DATE- APR-2021, STOP DATE- OCT-2021, (CHOP), FIRST LINE OF SYSTEMIC TREATMENT, R-CHOP/R-DHAOX
     Route: 065
  35. PREDNISONE [Suspect]
     Active Substance: PREDNISONE
     Indication: Mantle cell lymphoma
     Dosage: (AS A PART OF CHOP REGIMEN), FIRST LINE OF SYSTEMIC TREATMENT, R-CHOP/R-DHAOX (RITUXIMAB BIOSIMILLAR
     Route: 042
     Dates: start: 20210401, end: 20211001
  36. PREDNISONE [Suspect]
     Active Substance: PREDNISONE
     Dosage: START DATE- APR-2021, STOP DATE- OCT-2021, (CHOP), FIRST LINE OF SYSTEMIC TREATMENT, R-CHOP/R-DHAOX
     Route: 065
  37. DIETARY SUPPLEMENT [Suspect]
     Active Substance: DIETARY SUPPLEMENT
     Indication: Mantle cell lymphoma
     Dosage: (POLYMER), FIRST LINE OF SYSTEMIC TREATMENT, R-CHOP/R-DHAOX (RITUXIMAB BIOSIMILLAR)
     Route: 042
     Dates: start: 20210401, end: 20211001
  38. BACTRIM [Concomitant]
     Active Substance: SULFAMETHOXAZOLE\TRIMETHOPRIM
     Indication: Prophylaxis
     Dosage: UNK UNK, UNKNOWN FREQ, DRUG SEPARATE DOSAGE NUMBER 1
     Route: 065
  39. LINEZOLID [Concomitant]
     Active Substance: LINEZOLID
     Indication: Product used for unknown indication
     Dosage: DRUG SEPARATE DOSAGE NUMBER 1
     Route: 065
  40. ACYCLOVIR [Concomitant]
     Active Substance: ACYCLOVIR
     Indication: Prophylaxis
     Dosage: UNK UNK, UNKNOWN FREQ, DRUG SEPARATE DOSAGE NUMBER 1
     Route: 065

REACTIONS (3)
  - Cytopenia [Unknown]
  - Lymphadenopathy [Unknown]
  - Off label use [Unknown]
